FAERS Safety Report 7723227-X (Version None)
Quarter: 2011Q3

REPORT INFORMATION
  Report Type: 
  Country: None (occurrence: None)
  Receive Date: 20110826
  Receipt Date: 20110721
  Transmission Date: 20111222
  Serious: Yes (Other)
  Sender: FDA-Public Use
  Company Number: 2011166578

PATIENT
  Age: 50 Year
  Sex: Male

DRUGS (3)
  1. GEMTUZUMAB OZOGAMICIN (GEMTUZUMAB OZOGAMICIN) UNKNOWN [Suspect]
     Indication: ACUTE MYELOID LEUKAEMIA
     Dosage: 12 MG, 1X/DAY, INTRAVENOUS
     Route: 042
     Dates: start: 20080725, end: 20080725
  2. CYTARABINE [Suspect]
     Indication: ACUTE MYELOID LEUKAEMIA
     Dosage: 400 MG, 1X/DAY, INTRAVENOUS
     Route: 042
     Dates: start: 20080723, end: 20080729
  3. CERUBIDINE [Suspect]
     Indication: ACUTE MYELOID LEUKAEMIA
     Dosage: 120 MG, 1X/DAY, INTRAVENOUS
     Route: 042
     Dates: start: 20080723, end: 20080725

REACTIONS (1)
  - CYTOLYTIC HEPATITIS [None]
